FAERS Safety Report 6456887-4 (Version None)
Quarter: 2009Q4

REPORT INFORMATION
  Report Type: 
  Country: None (occurrence: None)
  Receive Date: 20091125
  Receipt Date: 20091117
  Transmission Date: 20100525
  Serious: Yes (Other)
  Sender: FDA-Public Use
  Company Number: CHPA2009NL22362

PATIENT
  Sex: Male
  Weight: 36 kg

DRUGS (11)
  1. SCOPOLAMINE [Suspect]
     Indication: SALIVARY HYPERSECRETION
     Dosage: 1.5 MG, QD
     Route: 062
     Dates: start: 20091118, end: 20091119
  2. DEPAKENE [Concomitant]
     Dosage: 300 MG, BID
  3. DIAZEPAM [Concomitant]
  4. HYDROCORTISONE [Concomitant]
     Dosage: 5 MG, QD
  5. BACITRACIN [Concomitant]
  6. COLISTIN [Concomitant]
  7. GENOTROPIN [Concomitant]
     Dosage: 12 MG, UNK
  8. LEVOTHYROXINE SODIUM [Concomitant]
     Dosage: 75 UG, QD
  9. MACROGOL [Concomitant]
  10. RISPERDAL [Concomitant]
     Dosage: 0.5 MG, QD
  11. HYDROCORTISONE [Concomitant]
     Dosage: 5 MG, QD

REACTIONS (5)
  - EPILEPSY [None]
  - INSOMNIA [None]
  - MYDRIASIS [None]
  - OFF LABEL USE [None]
  - RESTLESSNESS [None]
